FAERS Safety Report 8207618-9 (Version None)
Quarter: 2012Q1

REPORT INFORMATION
  Report Type: 
  Country: None (occurrence: None)
  Receive Date: 20120314
  Receipt Date: 20120314
  Transmission Date: 20120608
  Serious: Yes (Other)
  Sender: FDA-Public Use
  Company Number: None

PATIENT
  Age: 12 Year
  Sex: Male
  Weight: 43.091 kg

DRUGS (1)
  1. CIPRO [Suspect]

REACTIONS (11)
  - ANXIETY [None]
  - ERYTHEMA [None]
  - BALANCE DISORDER [None]
  - TIC [None]
  - CONFUSIONAL STATE [None]
  - AGITATION [None]
  - PRURITUS GENERALISED [None]
  - DECREASED APPETITE [None]
  - MENTAL IMPAIRMENT [None]
  - DYSCALCULIA [None]
  - URTICARIA [None]
